FAERS Safety Report 4674585-4 (Version None)
Quarter: 2005Q2

REPORT INFORMATION
  Report Type: 
  Country: None (occurrence: None)
  Receive Date: 20050525
  Receipt Date: 20050523
  Transmission Date: 20051028
  Serious: Yes (Death, Hospitalization)
  Sender: FDA-Public Use
  Company Number: 05-05-0928

PATIENT
  Age: 76 Year
  Sex: Female

DRUGS (1)
  1. CLOZAPINE [Suspect]
     Indication: SENILE DEMENTIA
     Dosage: 400MG QD ORAL
     Route: 048
     Dates: start: 20030301, end: 20050401

REACTIONS (3)
  - CEREBROVASCULAR ACCIDENT [None]
  - LETHARGY [None]
  - LOSS OF CONSCIOUSNESS [None]
